FAERS Safety Report 8948347 (Version 2)
Quarter: 2013Q2

REPORT INFORMATION
  Report Type: Report from Study
  Country: MX (occurrence: MX)
  Receive Date: 20121206
  Receipt Date: 20130515
  Transmission Date: 20140414
  Serious: Yes (Death, Hospitalization, Other)
  Sender: FDA-Public Use
  Company Number: PHHY2012MX112146

PATIENT
  Age: 70 Year
  Sex: Female

DRUGS (1)
  1. RASILEZ [Suspect]
     Indication: HYPERTENSION
     Dosage: 1 DF (300MG), DAILY
     Route: 048
     Dates: start: 20110911

REACTIONS (6)
  - Cardio-respiratory arrest [Fatal]
  - Diabetic complication [Fatal]
  - Renal disorder [Fatal]
  - Renal pain [Unknown]
  - Abdominal hernia [Unknown]
  - Depression [Unknown]
